FAERS Safety Report 5517691-4 (Version None)
Quarter: 2007Q4

REPORT INFORMATION
  Report Type: 
  Country: None (occurrence: None)
  Receive Date: 20071114
  Receipt Date: 20071107
  Transmission Date: 20080405
  Serious: Yes (Hospitalization)
  Sender: FDA-Public Use
  Company Number: US-ELI_LILLY_AND_COMPANY-US200711001865

PATIENT
  Sex: Female

DRUGS (3)
  1. PROZAC [Suspect]
  2. REGLAN [Concomitant]
     Indication: NAUSEA
  3. IMITREX [Concomitant]
     Indication: MIGRAINE

REACTIONS (2)
  - ENCEPHALOPATHY [None]
  - HEADACHE [None]
